FAERS Safety Report 20421773 (Version 1)
Quarter: 2022Q1

REPORT INFORMATION
  Report Type: Spontaneous
  Country: US (occurrence: US)
  Receive Date: 20220203
  Receipt Date: 20220203
  Transmission Date: 20220423
  Serious: No
  Sender: FDA-Public Use
  Company Number: US-PFIZER INC-2021542584

PATIENT
  Age: 41 Year
  Sex: Male
  Weight: 90.72 kg

DRUGS (1)
  1. NEURONTIN [Suspect]
     Active Substance: GABAPENTIN
     Indication: Back injury
     Dosage: UNK UNK, 2X/DAY UNKNOWN DOSAGE AND STATES HE THINKS HE TOOK IT TWICE PER DAY BY MOUTH
     Route: 048
     Dates: start: 199908

REACTIONS (3)
  - Pain in extremity [Not Recovered/Not Resolved]
  - Burning sensation [Not Recovered/Not Resolved]
  - Off label use [Not Recovered/Not Resolved]

NARRATIVE: CASE EVENT DATE: 19990101
